FAERS Safety Report 22265377 (Version 10)
Quarter: 2025Q2

REPORT INFORMATION
  Report Type: Spontaneous
  Country: IN (occurrence: IN)
  Receive Date: 20230428
  Receipt Date: 20250609
  Transmission Date: 20250716
  Serious: Yes (Other)
  Sender: PFIZER
  Company Number: IN-PFIZER INC-2021003849

PATIENT
  Age: 52 Year
  Sex: Male

DRUGS (5)
  1. SUTENT [Suspect]
     Active Substance: SUNITINIB MALATE
     Indication: Metastatic renal cell carcinoma
     Route: 048
     Dates: start: 20131025
  2. SUTENT [Suspect]
     Active Substance: SUNITINIB MALATE
     Route: 048
  3. SUTENT [Suspect]
     Active Substance: SUNITINIB MALATE
     Route: 048
  4. SUTENT [Suspect]
     Active Substance: SUNITINIB MALATE
     Dosage: 50 MG, 1X/DAY (FOR 4 MONTHS)
  5. SUTENT [Suspect]
     Active Substance: SUNITINIB MALATE
     Route: 048

REACTIONS (3)
  - Paralysis [Unknown]
  - Asthenia [Unknown]
  - Product prescribing error [Unknown]

NARRATIVE: CASE EVENT DATE: 20250604
